FAERS Safety Report 11744827 (Version 2)
Quarter: 2015Q4

REPORT INFORMATION
  Report Type: Spontaneous
  Country: GB (occurrence: GB)
  Receive Date: 20151116
  Receipt Date: 20151126
  Transmission Date: 20160304
  Serious: Yes (Hospitalization, Other)
  Sender: FDA-Public Use
  Company Number: GB-AMGEN-GBRSP2015120565

PATIENT
  Age: 59 Year
  Sex: Male

DRUGS (1)
  1. ARANESP [Suspect]
     Active Substance: DARBEPOETIN ALFA
     Indication: PRODUCT USED FOR UNKNOWN INDICATION
     Dosage: 60 MUG/0.3ML
     Route: 065

REACTIONS (13)
  - Chills [Unknown]
  - Anaemia [Recovering/Resolving]
  - Joint injury [Unknown]
  - Fall [Recovering/Resolving]
  - Body temperature increased [Recovering/Resolving]
  - Pain in extremity [Recovering/Resolving]
  - Groin pain [Unknown]
  - Testicular pain [Unknown]
  - Arthralgia [Unknown]
  - Malaise [Not Recovered/Not Resolved]
  - Contusion [Recovering/Resolving]
  - Altered state of consciousness [Unknown]
  - Dialysis [Unknown]

NARRATIVE: CASE EVENT DATE: 201510
